FAERS Safety Report 15369619 (Version 4)
Quarter: 2019Q1

REPORT INFORMATION
  Report Type: Report from Study
  Country: NO (occurrence: NO)
  Receive Date: 20180911
  Receipt Date: 20190320
  Transmission Date: 20190417
  Serious: Yes (Hospitalization)
  Sender: FDA-Public Use
  Company Number: NO-ROCHE-2181169

PATIENT
  Age: 70 Year
  Sex: Female
  Weight: 88.5 kg

DRUGS (18)
  1. VENETOCLAX. [Suspect]
     Active Substance: VENETOCLAX
     Indication: PLASMA CELL MYELOMA
     Dosage: MOST RECENT DOSE OF VENETOCLAX PRIOR TO SAE ONSET 800 MG ON 31/AUG/2018
     Route: 048
     Dates: start: 20180711
  2. SERTRALIN [Concomitant]
     Active Substance: SERTRALINE HYDROCHLORIDE
     Indication: DEPRESSION
     Route: 048
  3. PROLIA [Concomitant]
     Active Substance: DENOSUMAB
     Indication: PROPHYLAXIS
     Route: 058
     Dates: start: 201809, end: 20181001
  4. COBIMETINIB. [Suspect]
     Active Substance: COBIMETINIB
     Indication: PLASMA CELL MYELOMA
     Dosage: 3 TABLETS OF 20 MG EACH?MOST RECENT DOSE OF COBIMETINIB PRIOR TO SAE ONSET 40 MG ON 28/AUG/2018
     Route: 048
     Dates: start: 20180711
  5. ATEZOLIZUMAB. [Suspect]
     Active Substance: ATEZOLIZUMAB
     Indication: PLASMA CELL MYELOMA
     Dosage: MOST RECENT DOSE OF ATEZOLIZUMAB PRIOR TO SAE ONSET 840 MG ON 22/AUG/2018
     Route: 042
     Dates: start: 20180711
  6. VALIUM [Concomitant]
     Active Substance: DIAZEPAM
     Indication: RESTLESSNESS
     Route: 048
  7. ZOFRAN [Concomitant]
     Active Substance: ONDANSETRON HYDROCHLORIDE
     Indication: PROPHYLAXIS
     Route: 048
     Dates: start: 20180711
  8. ZOMETA [Concomitant]
     Active Substance: ZOLEDRONIC ACID
     Indication: PROPHYLAXIS
     Route: 042
     Dates: start: 201508
  9. BETASERC [Concomitant]
     Active Substance: BETAHISTINE
     Indication: MENIERE^S DISEASE
     Route: 048
  10. NYSTIMEX [Concomitant]
     Indication: ORAL CANDIDIASIS
     Route: 048
     Dates: start: 20180831, end: 201809
  11. FOLSYRE [Concomitant]
     Indication: ANAEMIA
     Route: 048
     Dates: start: 20171222
  12. SOBRIL [Concomitant]
     Active Substance: OXAZEPAM
     Indication: PROPHYLAXIS
     Route: 048
     Dates: start: 20180822, end: 20180822
  13. PARACET (NORWAY) [Concomitant]
     Indication: PROPHYLAXIS
     Route: 048
     Dates: start: 20180822, end: 20180822
  14. BORTEZOMIB. [Concomitant]
     Active Substance: BORTEZOMIB
  15. ALBYL-E [Concomitant]
     Active Substance: ASPIRIN\MAGNESIUM OXIDE
     Indication: PROPHYLAXIS
     Route: 048
     Dates: start: 20150708
  16. RELTEBON [Concomitant]
     Active Substance: OXYCODONE HYDROCHLORIDE
     Indication: PAIN
     Route: 048
     Dates: start: 2017
  17. AFIPRAN [Concomitant]
     Active Substance: METOCLOPRAMIDE HYDROCHLORIDE
     Indication: NAUSEA
     Route: 048
     Dates: start: 20171124
  18. LOPERAMID [Concomitant]
     Active Substance: LOPERAMIDE
     Indication: DIARRHOEA
     Route: 048
     Dates: start: 20180711

REACTIONS (1)
  - Pneumonia [Recovered/Resolved with Sequelae]

NARRATIVE: CASE EVENT DATE: 20180831
